FAERS Safety Report 5869669-9 (Version None)
Quarter: 2008Q3

REPORT INFORMATION
  Report Type: 
  Country: None (occurrence: None)
  Receive Date: 20080904
  Receipt Date: 20080825
  Transmission Date: 20090109
  Serious: Yes (Hospitalization, Other)
  Sender: FDA-Public Use
  Company Number: US-ELI_LILLY_AND_COMPANY-US200806001792

PATIENT
  Sex: Female

DRUGS (14)
  1. FORTEO [Suspect]
     Indication: OSTEOPOROSIS
     Dates: start: 20071202
  2. TOPROL-XL [Concomitant]
  3. METHADONE HCL [Concomitant]
  4. BUPROPION HYDROCHLORIDE [Concomitant]
  5. OMEPRAZOLE [Concomitant]
  6. MIRALAX [Concomitant]
  7. ASPIRIN [Concomitant]
  8. MIDRIN [Concomitant]
  9. MIRTAZAPINE [Concomitant]
  10. LOMOTIL [Concomitant]
  11. PROZAC [Concomitant]
  12. CALCIUM W/VITAMIN D /00944201/ [Concomitant]
  13. MULTI-VITAMIN [Concomitant]
  14. LEXAPRO [Concomitant]

REACTIONS (4)
  - FALL [None]
  - HIP FRACTURE [None]
  - LABILE BLOOD PRESSURE [None]
  - POST PROCEDURAL COMPLICATION [None]
